FAERS Safety Report 4808343-4 (Version None)
Quarter: 2005Q4

REPORT INFORMATION
  Report Type: 
  Country: None (occurrence: None)
  Receive Date: 20051021
  Receipt Date: 20030306
  Transmission Date: 20060501
  Serious: Yes (Other)
  Sender: FDA-Public Use
  Company Number: US_030393167

PATIENT
  Age: 16 Year
  Sex: Male

DRUGS (2)
  1. OLANZAPINE [Suspect]
     Dosage: 20 MG/D
  2. LITHIUM [Concomitant]

REACTIONS (5)
  - ANAEMIA [None]
  - BLOOD PHOSPHORUS DECREASED [None]
  - NEUROLEPTIC MALIGNANT SYNDROME [None]
  - URINARY RETENTION [None]
  - WHITE BLOOD CELL COUNT INCREASED [None]
